APPROVED DRUG PRODUCT: VIVLODEX
Active Ingredient: MELOXICAM
Strength: 5MG **Federal Register determination that product was not discontinued or withdrawn for safety or effectiveness reasons**
Dosage Form/Route: CAPSULE;ORAL
Application: N207233 | Product #001
Applicant: ICEUTICA OPERATIONS LLC
Approved: Oct 22, 2015 | RLD: Yes | RS: No | Type: DISCN

PATENTS:
Patent 9808468 | Expires: Mar 31, 2035
Patent 9808468 | Expires: Mar 31, 2035
Patent 9526734 | Expires: Mar 31, 2033
Patent 9649318 | Expires: Mar 31, 2035